FAERS Safety Report 4684370-5 (Version None)
Quarter: 2005Q2

REPORT INFORMATION
  Report Type: 
  Country: None (occurrence: None)
  Receive Date: 20050531
  Receipt Date: 20040716
  Transmission Date: 20051028
  Serious: Yes (Hospitalization)
  Sender: FDA-Public Use
  Company Number: 200415011US

PATIENT
  Age: 27 Year
  Sex: Female

DRUGS (3)
  1. LOVENOX [Suspect]
     Indication: POSTOPERATIVE CARE
     Dosage: 30 MG Q12H
  2. LOVENOX [Suspect]
     Indication: PROPHYLAXIS
     Dosage: 30 MG Q12H
  3. ANTIEPILEPTICS [Concomitant]

REACTIONS (3)
  - CHEST PAIN [None]
  - DYSPNOEA [None]
  - PULMONARY EMBOLISM [None]
